FAERS Safety Report 10151985 (Version 1)
Quarter: 2014Q2

REPORT INFORMATION
  Report Type: Spontaneous
  Country: US (occurrence: None)
  Receive Date: 20140501
  Receipt Date: 20140501
  Transmission Date: 20141212
  Serious: Yes (Other)
  Sender: FDA-Public Use
  Company Number: 2014-US-004644

PATIENT
  Age: 50 Year
  Sex: Female

DRUGS (6)
  1. XYREM (SODIUM OXYBATE) ORAL SOLUTION, 500 MG/ML [Suspect]
     Indication: NARCOLEPSY
     Route: 048
     Dates: start: 200811
  2. XYREM (SODIUM OXYBATE) ORAL SOLUTION, 500 MG/ML [Suspect]
     Indication: CATAPLEXY
     Route: 048
     Dates: start: 200811
  3. SIMVASTATIN (SIMVASTATIN) [Concomitant]
  4. ZOLOFT (SERTRALINE HYDROCHLORIDE) [Concomitant]
  5. CARVEDILOL [Concomitant]
  6. ESTRADIOL [Concomitant]

REACTIONS (4)
  - Sleep apnoea syndrome [None]
  - Restless legs syndrome [None]
  - Snoring [None]
  - Fatigue [None]
